FAERS Safety Report 8015558-3 (Version None)
Quarter: 2011Q4

REPORT INFORMATION
  Report Type: 
  Country: None (occurrence: None)
  Receive Date: 20111230
  Receipt Date: 20110930
  Transmission Date: 20120403
  Serious: No
  Sender: FDA-Public Use
  Company Number: US-BAYER-2011-093415

PATIENT
  Sex: Female

DRUGS (1)
  1. MENOSTAR [Suspect]
     Indication: BLOOD GROWTH HORMONE ABNORMAL

REACTIONS (2)
  - APPLICATION SITE IRRITATION [None]
  - ERYTHEMA [None]
